FAERS Safety Report 6647460-3 (Version None)
Quarter: 2010Q1

REPORT INFORMATION
  Report Type: 
  Country: None (occurrence: None)
  Receive Date: 20100323
  Receipt Date: 20100323
  Transmission Date: 20100710
  Serious: Yes (Hospitalization)
  Sender: FDA-Public Use
  Company Number: None

PATIENT
  Age: 56 Year
  Weight: 59.8748 kg

DRUGS (1)
  1. FLUOROURACIL 5% [Suspect]
     Dosage: 5% ONCE A WEEK FOR 5
     Dates: start: 20091005, end: 20091104

REACTIONS (4)
  - ABDOMINAL PAIN UPPER [None]
  - GROIN PAIN [None]
  - NEUROPATHY PERIPHERAL [None]
  - PELVIC PAIN [None]
